FAERS Safety Report 10561823 (Version 2)
Quarter: 2014Q4

REPORT INFORMATION
  Report Type: Spontaneous
  Country: US (occurrence: US)
  Receive Date: 20141104
  Receipt Date: 20141118
  Transmission Date: 20150529
  Serious: Yes (Other)
  Sender: FDA-Public Use
  Company Number: US-ROCHE-1484377

PATIENT
  Age: 17 Year
  Sex: Male
  Weight: 79 kg

DRUGS (3)
  1. METHOTREXATE [Concomitant]
     Active Substance: METHOTREXATE
     Route: 058
  2. ACTEMRA [Suspect]
     Active Substance: TOCILIZUMAB
     Indication: JUVENILE IDIOPATHIC ARTHRITIS
     Route: 042
  3. METHOTREXATE [Concomitant]
     Active Substance: METHOTREXATE
     Route: 048

REACTIONS (6)
  - Jaundice [Unknown]
  - Rash [Unknown]
  - Pruritus [Unknown]
  - Viral infection [Unknown]
  - Abdominal pain [Unknown]
  - Chest pain [Unknown]
